FAERS Safety Report 23553135 (Version 3)
Quarter: 2024Q2

REPORT INFORMATION
  Report Type: Spontaneous
  Country: JP (occurrence: JP)
  Receive Date: 20240222
  Receipt Date: 20240404
  Transmission Date: 20240715
  Serious: Yes (Death, Hospitalization)
  Sender: FDA-Public Use
  Company Number: JP-Eisai-202314094_HAL-STS_P_1

PATIENT
  Sex: Male

DRUGS (4)
  1. HALAVEN [Suspect]
     Active Substance: ERIBULIN MESYLATE
     Indication: Soft tissue sarcoma
     Route: 041
     Dates: start: 20240209, end: 20240211
  2. VONOPRAZAN FUMARATE [Concomitant]
     Active Substance: VONOPRAZAN FUMARATE
     Indication: Product used for unknown indication
     Dosage: DOSE AND FREQUENCY UNKNOWN
     Dates: end: 20240211
  3. AMITIZA [Concomitant]
     Active Substance: LUBIPROSTONE
     Indication: Product used for unknown indication
     Dosage: DOSE AND FREQUENCY UNKNOWN
     Dates: end: 20240211
  4. HEPARIN CALCIUM [Concomitant]
     Active Substance: HEPARIN CALCIUM
     Dosage: DOSE AND FREQUENCY UNKNOWN

REACTIONS (1)
  - Sepsis [Fatal]

NARRATIVE: CASE EVENT DATE: 20240211
